FAERS Safety Report 7284517-0 (Version None)
Quarter: 2011Q1

REPORT INFORMATION
  Report Type: 
  Country: None (occurrence: None)
  Receive Date: 20110209
  Receipt Date: 20110127
  Transmission Date: 20110831
  Serious: Yes (Hospitalization)
  Sender: FDA-Public Use
  Company Number: US-ASTRAZENECA-2011SE05149

PATIENT
  Age: 42 Year
  Sex: Male

DRUGS (6)
  1. KLONOPIN [Concomitant]
  2. ADDERALL 10 [Concomitant]
  3. NEXIUM [Suspect]
     Indication: GASTROOESOPHAGEAL REFLUX DISEASE
  4. TOPROL-XL [Suspect]
     Indication: ARRHYTHMIA
     Route: 048
  5. SUBOXONE [Concomitant]
     Dosage: 16-24 MG
  6. SEROQUEL [Suspect]
     Route: 048

REACTIONS (2)
  - HOSPITALISATION [None]
  - GASTROINTESTINAL DISORDER [None]
